FAERS Safety Report 15862929 (Version 2)
Quarter: 2019Q1

REPORT INFORMATION
  Report Type: Spontaneous
  Country: JP (occurrence: JP)
  Receive Date: 20190124
  Receipt Date: 20190131
  Transmission Date: 20190417
  Serious: Yes (Hospitalization)
  Sender: FDA-Public Use
  Company Number: JP-ABBVIE-19P-087-2631746-00

PATIENT
  Age: 18 Year
  Sex: Female

DRUGS (2)
  1. PREDNISOLONE. [Concomitant]
     Active Substance: PREDNISOLONE
     Indication: PRODUCT USED FOR UNKNOWN INDICATION
     Dosage: 30 MG
  2. ADALIMUMAB [Suspect]
     Active Substance: ADALIMUMAB
     Indication: CROHN^S DISEASE
     Route: 058

REACTIONS (10)
  - Nausea [Unknown]
  - Inflammation [Recovering/Resolving]
  - CSF mononuclear cell count increased [Recovering/Resolving]
  - Pyrexia [Recovering/Resolving]
  - Nuclear magnetic resonance imaging brain abnormal [Recovering/Resolving]
  - Encephalopathy [Recovered/Resolved]
  - Epilepsy [Unknown]
  - Headache [Recovering/Resolving]
  - Dyskinesia [Recovering/Resolving]
  - White matter lesion [Recovering/Resolving]
